FAERS Safety Report 20196219 (Version 2)
Quarter: 2022Q1

REPORT INFORMATION
  Report Type: Spontaneous
  Country: IN (occurrence: IN)
  Receive Date: 20211216
  Receipt Date: 20220118
  Transmission Date: 20220423
  Serious: Yes (Death, Hospitalization, Other)
  Sender: FDA-Public Use
  Company Number: IN-PFIZER INC-2020124635

PATIENT
  Age: 76 Year
  Sex: Male

DRUGS (3)
  1. SUTENT [Suspect]
     Active Substance: SUNITINIB MALATE
     Indication: Metastatic renal cell carcinoma
     Dosage: 25 MG, CYCLIC (ONCE A DAY FOR 2 WEEKS ON AND 1 WEEK OFF)
     Route: 048
     Dates: start: 20200307, end: 20210818
  2. TRANEXAMIC ACID [Concomitant]
     Active Substance: TRANEXAMIC ACID
     Dosage: 0.5 DF
  3. DULOXETINE [Concomitant]
     Active Substance: DULOXETINE
     Dosage: 20 MG, HS X 2 WEEKS

REACTIONS (3)
  - Death [Fatal]
  - Malaise [Unknown]
  - Haematuria [Unknown]

NARRATIVE: CASE EVENT DATE: 20210818
